FAERS Safety Report 6827214-5 (Version None)
Quarter: 2010Q3

REPORT INFORMATION
  Report Type: 
  Country: None (occurrence: None)
  Receive Date: 20100709
  Receipt Date: 20100702
  Transmission Date: 20110219
  Serious: Yes (Other)
  Sender: FDA-Public Use
  Company Number: GB-TEVA-239975ISR

PATIENT
  Age: 14 Year
  Sex: Male

DRUGS (3)
  1. OXCARBAZEPINE [Suspect]
     Indication: TEMPORAL LOBE EPILEPSY
  2. PRASTERONE [Suspect]
     Route: 048
  3. HYDROCORTISONE [Suspect]
     Indication: GLUCOCORTICOIDS DECREASED

REACTIONS (10)
  - ABDOMINAL DISCOMFORT [None]
  - BLOOD CORTICOTROPHIN INCREASED [None]
  - BLOOD CORTISOL ABNORMAL [None]
  - CONVULSION [None]
  - DRUG INTERACTION [None]
  - FATIGUE [None]
  - GLUCOCORTICOIDS DECREASED [None]
  - NAUSEA [None]
  - SKIN HYPERPIGMENTATION [None]
  - WEIGHT INCREASED [None]
